FAERS Safety Report 6405469-9 (Version None)
Quarter: 2009Q4

REPORT INFORMATION
  Report Type: 
  Country: None (occurrence: None)
  Receive Date: 20091019
  Receipt Date: 20091014
  Transmission Date: 20100525
  Serious: Yes (Hospitalization)
  Sender: FDA-Public Use
  Company Number: US-GILEAD-2009-0024801

PATIENT
  Sex: Male
  Weight: 102.15 kg

DRUGS (9)
  1. LETAIRIS [Suspect]
     Indication: PULMONARY ARTERIAL HYPERTENSION
     Route: 048
     Dates: start: 20090702
  2. FUROSEMIDE [Concomitant]
  3. COZAAR [Concomitant]
  4. LIPITOR [Concomitant]
  5. ALLOPURINOL [Concomitant]
  6. NEXIUM [Concomitant]
  7. GLIPIZIDE [Concomitant]
  8. LIALDA [Concomitant]
  9. IRON [Concomitant]

REACTIONS (1)
  - CARDIAC FAILURE CONGESTIVE [None]
